FAERS Safety Report 5636834-5 (Version None)
Quarter: 2008Q1

REPORT INFORMATION
  Report Type: 
  Country: None (occurrence: None)
  Receive Date: 20080225
  Receipt Date: 20080214
  Transmission Date: 20080703
  Serious: Yes (Hospitalization)
  Sender: FDA-Public Use
  Company Number: US-JNJFOC-20080203758

PATIENT
  Sex: Female
  Weight: 58.97 kg

DRUGS (8)
  1. DURAGESIC-100 [Suspect]
     Dosage: 2 X 50 MCG
     Route: 062
  2. DURAGESIC-100 [Suspect]
     Indication: PAIN
     Route: 062
  3. DIAZEPAM [Concomitant]
     Indication: DEPRESSION
     Route: 048
  4. PLAVIX [Concomitant]
     Route: 048
  5. CENTRUM VITAMIN [Concomitant]
     Route: 048
  6. HYDROCHLOROTHIAZIDE [Concomitant]
     Indication: HYPERTENSION
     Dosage: 75-50 MG, ONE HALF DAILY
     Route: 048
  7. FOLIC ACID [Concomitant]
     Route: 048
  8. CATAPRIL [Concomitant]
     Route: 048

REACTIONS (3)
  - CHEST DISCOMFORT [None]
  - MALAISE [None]
  - NAUSEA [None]
